FAERS Safety Report 9973811 (Version 1)
Quarter: 2014Q1

REPORT INFORMATION
  Report Type: Spontaneous
  Country: FR (occurrence: FR)
  Receive Date: 20140306
  Receipt Date: 20140306
  Transmission Date: 20141002
  Serious: Yes (Life-Threatening, Hospitalization, Other)
  Sender: FDA-Public Use
  Company Number: FR-ASTRAZENECA-2014SE15546

PATIENT
  Age: 41 Year
  Sex: Female

DRUGS (12)
  1. XEROQUEL [Suspect]
     Dosage: ONCE/SINGLE ADMINISTRATION
     Route: 048
     Dates: start: 20140107, end: 20140107
  2. IBUPROFEN [Suspect]
     Dosage: ONCE/SINGLE ADMINISTRATION
     Dates: start: 20140107, end: 20140107
  3. ZOLMITRIPTAN [Suspect]
     Dosage: ONCE/SINGLE ADMINISTRATION
     Dates: start: 20140107, end: 20140107
  4. OLANZAPINE [Suspect]
     Dosage: ONCE/SINGLE ADMINISTRATION
     Route: 048
     Dates: start: 20140107, end: 20140107
  5. THERALENE [Suspect]
     Dosage: ONCE/SINGLE ADMINISTRATION
     Route: 048
     Dates: start: 20140107, end: 20140107
  6. ZOPICLONE [Suspect]
     Dosage: ONCE/SINGLE ADMINISTRATION
     Route: 048
     Dates: start: 20140107, end: 20140107
  7. TETRAZEPAM [Suspect]
     Dosage: ONCE/SINGLE ADMINISTRATION
     Route: 048
     Dates: start: 20140107, end: 20140107
  8. SPOTOF [Suspect]
     Dosage: ONCE/SINGLE ADMINISTRATION
     Dates: start: 20140107, end: 20140107
  9. VALDOXAN [Suspect]
     Dosage: ONCE/SINGLE ADMINISTRATION
     Dates: start: 20140107, end: 20140107
  10. LAMICTAL [Concomitant]
  11. LYSANXIA [Concomitant]
  12. ATARAX [Concomitant]

REACTIONS (8)
  - Coma [Recovered/Resolved]
  - Electrocardiogram QT prolonged [Recovered/Resolved]
  - Aspiration [Unknown]
  - Tachycardia [Unknown]
  - Sleep disorder due to general medical condition, insomnia type [Unknown]
  - Confusional state [Unknown]
  - Hallucination, visual [Unknown]
  - Hypotension [Unknown]
